FAERS Safety Report 14862095 (Version 1)
Quarter: 2018Q2

REPORT INFORMATION
  Report Type: Report from Study
  Country: DE (occurrence: DE)
  Receive Date: 20180508
  Receipt Date: 20180508
  Transmission Date: 20180711
  Serious: Yes (Hospitalization, Other)
  Sender: FDA-Public Use
  Company Number: PHHY2018DE075979

PATIENT
  Sex: Male

DRUGS (1)
  1. COSENTYX [Suspect]
     Active Substance: SECUKINUMAB
     Indication: PSORIASIS
     Route: 065

REACTIONS (5)
  - Eosinophil count increased [Recovered/Resolved]
  - Eosinophil cationic protein increased [Recovered/Resolved]
  - Eczema [Recovered/Resolved]
  - Neurodermatitis [Recovered/Resolved]
  - Blood immunoglobulin G increased [Recovered/Resolved]
